FAERS Safety Report 4318244-6 (Version None)
Quarter: 2004Q1

REPORT INFORMATION
  Report Type: 
  Country: None (occurrence: None)
  Receive Date: 20040315
  Receipt Date: 20040226
  Transmission Date: 20041129
  Serious: Yes (Life-Threatening, Hospitalization)
  Sender: FDA-Public Use
  Company Number: F04200300214

PATIENT
  Age: 65 Year
  Sex: Female

DRUGS (3)
  1. ELOXATIN [Suspect]
     Indication: COLON CANCER METASTATIC
     Dosage: 71 MG/M2 OTHER (CUMULATIVE DOSE : 142 MG/M2) INTRAVENOUS DRIP
     Route: 041
     Dates: start: 20031124, end: 20031124
  2. XELODA [Suspect]
     Indication: COLON CANCER METASTATIC
     Dosage: 3500 MG ORAL
     Route: 048
     Dates: start: 20021117, end: 20031124
  3. KEVATRIL (GRANISETRON HYRDOCHLORIDE) [Concomitant]

REACTIONS (2)
  - DRUG HYPERSENSITIVITY [None]
  - RESPIRATORY DISTRESS [None]
